FAERS Safety Report 7331085-0 (Version None)
Quarter: 2011Q1

REPORT INFORMATION
  Report Type: 
  Country: None (occurrence: None)
  Receive Date: 20110304
  Receipt Date: 20110224
  Transmission Date: 20110831
  Serious: Yes (Hospitalization)
  Sender: FDA-Public Use
  Company Number: US-US-EMD SERONO, INC.-232494J10USA

PATIENT
  Sex: Female
  Weight: 73 kg

DRUGS (7)
  1. REBIF [Suspect]
     Indication: MULTIPLE SCLEROSIS
     Route: 058
     Dates: start: 20090101
  2. CATAPRES [Concomitant]
     Indication: BLOOD PRESSURE
     Dates: start: 20110101
  3. DETROL [Concomitant]
     Indication: BLADDER DISORDER
     Dates: start: 20070101
  4. LISINOPRIL [Concomitant]
     Indication: BLOOD PRESSURE
     Dates: start: 20050101
  5. WELLBUTRIN [Concomitant]
     Indication: DEPRESSION
     Dates: start: 20100101
  6. REBIF [Suspect]
     Route: 058
  7. LYRICA [Concomitant]
     Indication: MULTIPLE SCLEROSIS
     Dates: start: 20030101

REACTIONS (2)
  - FALL [None]
  - MUSCULAR WEAKNESS [None]
